FAERS Safety Report 10659694 (Version 1)
Quarter: 2014Q4

REPORT INFORMATION
  Report Type: Spontaneous
  Country: US (occurrence: None)
  Receive Date: 20141205
  Receipt Date: 20141205
  Transmission Date: 20150529
  Serious: Yes (Other)
  Sender: FDA-Public Use
  Company Number: 163-POMAL-14083846

PATIENT
  Age: 64 Year
  Sex: Male
  Weight: 60.3 kg

DRUGS (24)
  1. DEXAMETHASONE. [Concomitant]
     Active Substance: DEXAMETHASONE
  2. NEUPOGEN [Concomitant]
     Active Substance: FILGRASTIM
  3. XANAX [Concomitant]
     Active Substance: ALPRAZOLAM
  4. AMBIEN [Concomitant]
     Active Substance: ZOLPIDEM TARTRATE
  5. ATIVAN [Concomitant]
     Active Substance: LORAZEPAM
  6. BACTRIM [Concomitant]
     Active Substance: SULFAMETHOXAZOLE\TRIMETHOPRIM
  7. EQL CHILDREN^S VITAMIN D (ERGOCALCIFEROL) [Concomitant]
  8. ALBUTEROL SULFATE (SALBUTAMOL SULFATE) [Concomitant]
     Active Substance: ALBUTEROL SULFATE
  9. VITAMIN B6 [Concomitant]
     Active Substance: PYRIDOXINE HYDROCHLORIDE
  10. PREDNISONE (PREDNISONE) [Concomitant]
     Active Substance: PREDNISONE
  11. CENTRUM [Concomitant]
     Active Substance: VITAMINS
  12. VELCADE [Concomitant]
     Active Substance: BORTEZOMIB
  13. DUONEB [Concomitant]
     Active Substance: ALBUTEROL SULFATE\IPRATROPIUM BROMIDE
  14. VITAMIN B12 [Concomitant]
     Active Substance: CYANOCOBALAMIN
  15. EQ LORATADINE (LORATADINE) [Concomitant]
  16. POMALYST [Suspect]
     Active Substance: POMALIDOMIDE
     Indication: PLASMA CELL MYELOMA
     Dosage: 4 MG, 1 IN 1 D, PO?
     Route: 048
     Dates: start: 201402
  17. ACYCLOVIR SODIUM. [Concomitant]
     Active Substance: ACYCLOVIR SODIUM
  18. ASPIRIN (ACETYLSALICYLIC ACID) [Concomitant]
     Active Substance: ASPIRIN
  19. FOLIC ACID. [Concomitant]
     Active Substance: FOLIC ACID
  20. MULTIVITAMINS [Concomitant]
     Active Substance: VITAMINS
  21. PRILOSEC (OMEPRAZOLE) [Concomitant]
     Active Substance: OMEPRAZOLE MAGNESIUM
  22. LEVOTHYROXINE SODIUM. [Concomitant]
     Active Substance: LEVOTHYROXINE SODIUM
  23. XALATAN [Concomitant]
     Active Substance: LATANOPROST
  24. OXYCODONE [Concomitant]
     Active Substance: OXYCODONE

REACTIONS (2)
  - Body height decreased [None]
  - Neuropathy peripheral [None]

NARRATIVE: CASE EVENT DATE: 2014
